FAERS Safety Report 24670683 (Version 2)
Quarter: 2024Q4

REPORT INFORMATION
  Report Type: Report from Study
  Country: US (occurrence: US)
  Receive Date: 20241127
  Receipt Date: 20241210
  Transmission Date: 20250115
  Serious: Yes (Life-Threatening, Hospitalization)
  Sender: TEVA
  Company Number: US-TEVA-VS-3267540

PATIENT
  Age: 14 Year
  Sex: Male

DRUGS (7)
  1. TOPIRAMATE [Suspect]
     Active Substance: TOPIRAMATE
     Indication: Status epilepticus
     Route: 065
  2. DIAZEPAM [Suspect]
     Active Substance: DIAZEPAM
     Indication: Status epilepticus
     Route: 042
  3. KETAMINE [Suspect]
     Active Substance: KETAMINE
     Indication: Status epilepticus
     Route: 050
  4. LACOSAMIDE [Concomitant]
     Active Substance: LACOSAMIDE
     Indication: Status epilepticus
     Route: 065
  5. BRIVARACETAM [Suspect]
     Active Substance: BRIVARACETAM
     Indication: Status epilepticus
     Route: 042
  6. LEVETIRACETAM [Suspect]
     Active Substance: LEVETIRACETAM
     Indication: Status epilepticus
     Route: 042
  7. PHENOBARBITAL [Suspect]
     Active Substance: PHENOBARBITAL
     Indication: Status epilepticus
     Route: 042

REACTIONS (1)
  - Drug ineffective [Unknown]
